FAERS Safety Report 25125535 (Version 1)
Quarter: 2025Q1

REPORT INFORMATION
  Report Type: Spontaneous
  Country: AU (occurrence: AU)
  Receive Date: 20250326
  Receipt Date: 20250326
  Transmission Date: 20250409
  Serious: Yes (Other)
  Sender: GE HEALTHCARE
  Company Number: AU-GE HEALTHCARE-2025CSU003593

PATIENT
  Age: 21 Year
  Sex: Male

DRUGS (1)
  1. OMNIPAQUE [Suspect]
     Active Substance: IOHEXOL
     Indication: Computerised tomogram
     Route: 065
     Dates: start: 20240525, end: 20240525

REACTIONS (4)
  - Sneezing [Unknown]
  - Dyspnoea [Unknown]
  - Flushing [Unknown]
  - Head discomfort [Unknown]

NARRATIVE: CASE EVENT DATE: 20240525
